FAERS Safety Report 25431175 (Version 1)
Quarter: 2025Q2

REPORT INFORMATION
  Report Type: Spontaneous
  Country: PT (occurrence: PT)
  Receive Date: 20250613
  Receipt Date: 20250613
  Transmission Date: 20250717
  Serious: Yes (Hospitalization, Other)
  Sender: ABBVIE
  Company Number: PT-SA-2025SA159363

PATIENT
  Age: 76 Year
  Sex: Female

DRUGS (4)
  1. PREDNISOLONE [Suspect]
     Active Substance: PREDNISOLONE
     Indication: Periorbital pain
     Route: 065
  2. PREDNISOLONE [Suspect]
     Active Substance: PREDNISOLONE
     Indication: Eye pain
  3. PREDNISOLONE [Suspect]
     Active Substance: PREDNISOLONE
     Indication: Skin lesion
  4. LEFLUNOMIDE [Suspect]
     Active Substance: LEFLUNOMIDE
     Indication: Rheumatoid arthritis
     Route: 065

REACTIONS (10)
  - Corneal opacity [Recovering/Resolving]
  - Herpes ophthalmic [Recovering/Resolving]
  - Periorbital pain [Recovering/Resolving]
  - Eye pain [Recovering/Resolving]
  - Ulcerative keratitis [Recovering/Resolving]
  - Gait disturbance [Recovering/Resolving]
  - Headache [Unknown]
  - Skin lesion [Recovering/Resolving]
  - Visual acuity reduced [Recovering/Resolving]
  - Pleocytosis [Unknown]
